FAERS Safety Report 7355241-0 (Version None)
Quarter: 2011Q1

REPORT INFORMATION
  Report Type: 
  Country: None (occurrence: None)
  Receive Date: 20110316
  Receipt Date: 20110315
  Transmission Date: 20110831
  Serious: Yes (Death, Hospitalization, Other)
  Sender: FDA-Public Use
  Company Number: IN-AMGEN-UK248693

PATIENT
  Age: 34 Year
  Sex: Female

DRUGS (14)
  1. IBUPROFEN [Concomitant]
     Dosage: 400 MG, PRN
     Dates: start: 20070723, end: 20071011
  2. KETOROLAC [Concomitant]
     Dosage: 10 MG, UNK
     Dates: start: 20071008, end: 20071010
  3. TAMOXIFEN [Concomitant]
     Dosage: 20 MG, QD
     Dates: start: 20070723
  4. ONDANSETRON [Concomitant]
     Dosage: 4 MG, PRN
     Dates: start: 20070821, end: 20071010
  5. TRAMADOL [Concomitant]
     Dosage: 50 MG, TID
     Dates: start: 20070917, end: 20070920
  6. LORAZEPAM [Concomitant]
     Dosage: 1 MG, UNK
     Dates: start: 20070917, end: 20071010
  7. PARAFFIN, LIQUID [Concomitant]
     Dosage: 3.75 ML, QD
     Dates: start: 20070917
  8. MAGNESIUM HYDROXIDE [Concomitant]
     Dosage: UNK UNK, QD
     Dates: start: 20070917
  9. BECOSYM FORTE [Concomitant]
     Dosage: UNK UNK, UNK
     Dates: start: 20070917, end: 20070927
  10. CALCIUM [Concomitant]
     Dosage: 500 MG, QD
     Dates: start: 20070723
  11. DENOSUMAB [Suspect]
     Indication: METASTASES TO BONE
     Dosage: UNK UNK, Q4WK
     Route: 058
     Dates: start: 20070723, end: 20070917
  12. PARACETAMOL [Concomitant]
     Dosage: 500 MG, PRN
     Dates: start: 20070723, end: 20071011
  13. PLACEBO [Suspect]
     Dosage: UNK UNK, Q4WK
     Route: 042
     Dates: start: 20070723, end: 20071012
  14. COLECALCIFEROL [Concomitant]
     Dosage: 250 IU, QD
     Dates: start: 20070723

REACTIONS (18)
  - NEOPLASM MALIGNANT [None]
  - DECREASED APPETITE [None]
  - PAIN IN EXTREMITY [None]
  - VOMITING [None]
  - VIITH NERVE PARALYSIS [None]
  - ABDOMINAL PAIN [None]
  - COUGH [None]
  - STOMATITIS [None]
  - KERATITIS [None]
  - ASTHENIA [None]
  - BACK PAIN [None]
  - DIPLEGIA [None]
  - REFUSAL OF TREATMENT BY PATIENT [None]
  - INSOMNIA [None]
  - DYSPNOEA [None]
  - HYPERTENSION [None]
  - MENINGITIS [None]
  - HYDROCEPHALUS [None]
